FAERS Safety Report 6394475-9 (Version None)
Quarter: 2009Q4

REPORT INFORMATION
  Report Type: 
  Country: None (occurrence: None)
  Receive Date: 20091009
  Receipt Date: 20090929
  Transmission Date: 20100525
  Serious: Yes (Death, Other)
  Sender: FDA-Public Use
  Company Number: US-TEVA-041556

PATIENT
  Age: 62 Year
  Sex: Female

DRUGS (2)
  1. NYSTATIN VAGINAL INSERTS 100000UNITS [Suspect]
  2. CEFUROXIME [Suspect]

REACTIONS (2)
  - ACUTE RESPIRATORY DISTRESS SYNDROME [None]
  - LIVER DISORDER [None]
